FAERS Safety Report 7690553-2 (Version None)
Quarter: 2011Q3

REPORT INFORMATION
  Report Type: 
  Country: None (occurrence: None)
  Receive Date: 20110812
  Receipt Date: 20110729
  Transmission Date: 20111222
  Serious: Yes (Life-Threatening)
  Sender: FDA-Public Use
  Company Number: TCI2011A03813

PATIENT
  Age: 54 Year
  Sex: Male

DRUGS (6)
  1. AMLODIPINE BESYLATE [Concomitant]
  2. NORVASC [Concomitant]
  3. BLOPRESS TABLETS 4 (CANDESARTAN CILEXETIL) [Concomitant]
  4. LANSOPRAZOLE [Suspect]
     Indication: GASTROOESOPHAGEAL REFLUX DISEASE
     Dosage: 15 MG (15 MG,1 IN 1 D) PER ORAL
     Route: 048
     Dates: start: 20060101, end: 20110110
  5. LANSOPRAZOLE [Suspect]
     Indication: GASTROOESOPHAGEAL REFLUX DISEASE
     Dosage: 15 MG (15 MG,1 IN 1 D) PER ORAL ; 15 MG (15 MG,1 IN 1 D) PER ORAL
     Route: 048
     Dates: start: 20110111, end: 20110707
  6. LANSOPRAZOLE [Suspect]
     Indication: GASTROOESOPHAGEAL REFLUX DISEASE
     Dosage: 15 MG (15 MG,1 IN 1 D) PER ORAL ; 15 MG (15 MG,1 IN 1 D) PER ORAL
     Route: 048
     Dates: start: 20110709

REACTIONS (15)
  - HYPOPHOSPHATAEMIA [None]
  - LIVER DISORDER [None]
  - OCCULT BLOOD [None]
  - ASPARTATE AMINOTRANSFERASE INCREASED [None]
  - HYPOCALCAEMIA [None]
  - ALANINE AMINOTRANSFERASE INCREASED [None]
  - BLOOD CHOLESTEROL INCREASED [None]
  - DYSPEPSIA [None]
  - HYPOKALAEMIA [None]
  - EPISTAXIS [None]
  - GAMMA-GLUTAMYLTRANSFERASE INCREASED [None]
  - HYPERVENTILATION [None]
  - PROTEINURIA [None]
  - TETANY [None]
  - BLOOD PRESSURE INCREASED [None]
